FAERS Safety Report 6912322-0 (Version None)
Quarter: 2010Q3

REPORT INFORMATION
  Report Type: 
  Country: None (occurrence: None)
  Receive Date: 20100806
  Receipt Date: 20080404
  Transmission Date: 20110219
  Serious: No
  Sender: FDA-Public Use
  Company Number: US-PFIZER INC-2008028261

PATIENT
  Age: 63 Year
  Sex: Female
  Weight: 109.09 kg

DRUGS (13)
  1. DETROL LA [Suspect]
     Indication: POLLAKIURIA
  2. DETROL LA [Suspect]
     Indication: MICTURITION URGENCY
  3. TRICOR [Concomitant]
  4. SULFASALAZINE [Concomitant]
  5. PREDNISONE [Concomitant]
  6. VALSARTAN [Concomitant]
     Dosage: 160 MG AND 80 MG
  7. ALLOPURINOL [Concomitant]
  8. POTASSIUM [Concomitant]
  9. SPIRONOLACTONE [Concomitant]
  10. REQUIP [Concomitant]
  11. GABAPENTIN [Concomitant]
  12. IRON [Concomitant]
  13. CYMBALTA [Concomitant]

REACTIONS (2)
  - DRUG EFFECT DECREASED [None]
  - INCORRECT DOSE ADMINISTERED [None]
